FAERS Safety Report 6314572-3 (Version None)
Quarter: 2009Q3

REPORT INFORMATION
  Report Type: 
  Country: None (occurrence: None)
  Receive Date: 20090819
  Receipt Date: 20090814
  Transmission Date: 20100115
  Serious: Yes (Death, Other)
  Sender: FDA-Public Use
  Company Number: PHEH2009US09227

PATIENT
  Sex: Female

DRUGS (1)
  1. SANDOSTATIN [Suspect]
     Indication: CARCINOID SYNDROME
     Dosage: UNK, UNK

REACTIONS (4)
  - DIARRHOEA [None]
  - HEPATIC FAILURE [None]
  - HOT FLUSH [None]
  - MALIGNANT NEOPLASM PROGRESSION [None]
